FAERS Safety Report 24775834 (Version 1)
Quarter: 2024Q4

REPORT INFORMATION
  Report Type: Spontaneous
  Country: JP (occurrence: JP)
  Receive Date: 20241226
  Receipt Date: 20241226
  Transmission Date: 20250115
  Serious: Yes (Hospitalization, Other)
  Sender: ALKEM
  Company Number: JP-ALKEM LABORATORIES LIMITED-JP-ALKEM-2024-18110

PATIENT
  Age: 33 Year
  Sex: Female

DRUGS (8)
  1. ACETAMINOPHEN [Suspect]
     Active Substance: ACETAMINOPHEN
     Indication: Headache
     Dosage: UNK (EQUIVALENT TO 13.2 GRAMS)
     Route: 065
  2. TACROLIMUS [Suspect]
     Active Substance: TACROLIMUS
     Indication: Immunosuppressant drug therapy
     Dosage: UNK
     Route: 065
  3. METHYLPREDNISOLONE [Suspect]
     Active Substance: METHYLPREDNISOLONE
     Indication: Immunosuppressant drug therapy
     Dosage: 1000 MILLIGRAM
     Route: 042
  4. MYCOPHENOLATE MOFETIL [Suspect]
     Active Substance: MYCOPHENOLATE MOFETIL
     Indication: Acute hepatic failure
     Dosage: 2000 MG/DAY
     Route: 065
  5. MYCOPHENOLATE MOFETIL [Suspect]
     Active Substance: MYCOPHENOLATE MOFETIL
     Indication: Coma hepatic
  6. MYCOPHENOLATE MOFETIL [Suspect]
     Active Substance: MYCOPHENOLATE MOFETIL
     Indication: Immunosuppressant drug therapy
  7. GABEXATE MESYLATE [Concomitant]
     Active Substance: GABEXATE MESYLATE
     Indication: Product used for unknown indication
     Dosage: UNK
     Route: 065
  8. GANCICLOVIR [Concomitant]
     Active Substance: GANCICLOVIR
     Indication: Prophylaxis
     Dosage: UNK
     Route: 065

REACTIONS (6)
  - Loss of consciousness [Recovered/Resolved]
  - Coma hepatic [Recovered/Resolved]
  - Acute hepatic failure [Recovered/Resolved]
  - Toxicity to various agents [Unknown]
  - Overdose [Unknown]
  - Cytomegalovirus infection [Unknown]
